FAERS Safety Report 12202673 (Version 3)
Quarter: 2016Q2

REPORT INFORMATION
  Report Type: Spontaneous
  Country: FR (occurrence: FR)
  Receive Date: 20160322
  Receipt Date: 20160525
  Transmission Date: 20160815
  Serious: Yes (Hospitalization, Other)
  Sender: FDA-Public Use
  Company Number: FR-ABBVIE-16P-056-1586848-00

PATIENT
  Age: 75 Year
  Sex: Female

DRUGS (11)
  1. FOLATE [Concomitant]
     Active Substance: FOLATE SODIUM
     Indication: PRODUCT USED FOR UNKNOWN INDICATION
     Route: 048
  2. PREVISCAN [Interacting]
     Active Substance: FLUINDIONE
     Indication: HEART VALVE INCOMPETENCE
     Route: 048
  3. HEMIGOXINE [Interacting]
     Active Substance: DIGOXIN
     Indication: PRODUCT USED FOR UNKNOWN INDICATION
     Route: 048
     Dates: start: 1985
  4. VIEKIRAX [Interacting]
     Active Substance: OMBITASVIR\PARITAPREVIR\RITONAVIR
     Indication: HEPATIC CIRRHOSIS
  5. POTASSIUM [Concomitant]
     Active Substance: POTASSIUM
     Indication: PRODUCT USED FOR UNKNOWN INDICATION
  6. ARANESP [Concomitant]
     Active Substance: DARBEPOETIN ALFA
     Indication: PRODUCT USED FOR UNKNOWN INDICATION
     Route: 058
  7. FUROSEMIDE. [Concomitant]
     Active Substance: FUROSEMIDE
     Indication: PRODUCT USED FOR UNKNOWN INDICATION
     Route: 048
  8. EXVIERA [Interacting]
     Active Substance: DASABUVIR
     Indication: HEPATIC CIRRHOSIS
  9. ESOMEPRAZOLE [Concomitant]
     Active Substance: ESOMEPRAZOLE
     Indication: PRODUCT USED FOR UNKNOWN INDICATION
     Route: 048
  10. VIEKIRAX [Suspect]
     Active Substance: OMBITASVIR\PARITAPREVIR\RITONAVIR
     Indication: CHRONIC HEPATITIS C
     Route: 048
     Dates: start: 20160204, end: 20160430
  11. EXVIERA [Interacting]
     Active Substance: DASABUVIR
     Indication: CHRONIC HEPATITIS C
     Route: 048
     Dates: start: 20160204, end: 20160430

REACTIONS (6)
  - Cardiac failure [Recovered/Resolved]
  - Drug interaction [Unknown]
  - International normalised ratio increased [Recovered/Resolved]
  - Cardiac failure [Recovered/Resolved]
  - Cardioactive drug level increased [Not Recovered/Not Resolved]
  - International normalised ratio decreased [Unknown]

NARRATIVE: CASE EVENT DATE: 20160211
